FAERS Safety Report 18192335 (Version 1)
Quarter: 2020Q3

REPORT INFORMATION
  Report Type: Spontaneous
  Country: US (occurrence: US)
  Receive Date: 20200825
  Receipt Date: 20200825
  Transmission Date: 20201103
  Serious: Yes (Disabling)
  Sender: FDA-Public Use
  Company Number: None

PATIENT
  Age: 26 Year
  Sex: Male
  Weight: 105.75 kg

DRUGS (2)
  1. CLONAZEPAM. [Concomitant]
     Active Substance: CLONAZEPAM
  2. DEXTROAMPHET SACCHARAT, AMPHET ASPARTATE, DEXTROAMPHET SULFATE AND AMPHET SULFAT [Suspect]
     Active Substance: AMPHETAMINE ASPARTATE\AMPHETAMINE SULFATE\DEXTROAMPHETAMINE SACCHARATE\DEXTROAMPHETAMINE SULFATE
     Indication: ATTENTION DEFICIT HYPERACTIVITY DISORDER
     Dosage: ?          QUANTITY:120 TABLET(S);OTHER FREQUENCY:TAKE TWO TWICE DAY;?
     Route: 048
     Dates: start: 20200115

REACTIONS (16)
  - Irritability [None]
  - Manufacturing issue [None]
  - Lethargy [None]
  - Anxiety [None]
  - Heart rate increased [None]
  - Product quality issue [None]
  - Disturbance in attention [None]
  - Stereotypy [None]
  - Headache [None]
  - Joint stiffness [None]
  - Myalgia [None]
  - Trismus [None]
  - Bruxism [None]
  - Agitation [None]
  - Depression [None]
  - Confusional state [None]

NARRATIVE: CASE EVENT DATE: 20200807
